FAERS Safety Report 8026991-8 (Version None)
Quarter: 2012Q1

REPORT INFORMATION
  Report Type: 
  Country: None (occurrence: None)
  Receive Date: 20120106
  Receipt Date: 20120104
  Transmission Date: 20120608
  Serious: Yes (Other)
  Sender: FDA-Public Use
  Company Number: IE-PFIZER INC-2011006073

PATIENT
  Age: 41 Year
  Sex: Female
  Weight: 84 kg

DRUGS (5)
  1. PROZAC [Interacting]
     Dosage: 40 MG, UNK
  2. VARENICLINE TARTRATE [Interacting]
     Dosage: USUAL MAINTENANCE DOSE
     Dates: start: 20101026, end: 20101101
  3. VARENICLINE TARTRATE [Suspect]
     Indication: SMOKING CESSATION THERAPY
     Dosage: STARTER PACK
     Dates: start: 20100801
  4. PROZAC [Interacting]
     Indication: DEPRESSION
     Dosage: 20 MG, UNK
  5. PROZAC [Interacting]
     Dosage: 80 MG, UNK

REACTIONS (7)
  - DISORIENTATION [None]
  - DRUG INTERACTION [None]
  - DEPRESSED MOOD [None]
  - AMNESIA [None]
  - ALCOHOL USE [None]
  - COGNITIVE DISORDER [None]
  - AGGRESSION [None]
